FAERS Safety Report 17559337 (Version 2)
Quarter: 2020Q2

REPORT INFORMATION
  Report Type: Report from Study
  Country: None (occurrence: AR)
  Receive Date: 20200319
  Receipt Date: 20200608
  Transmission Date: 20200713
  Serious: Yes (Hospitalization, Other)
  Sender: FDA-Public Use
  Company Number: AR-ABBVIE-20K-007-3327309-00

PATIENT
  Age: 67 Year
  Sex: Female

DRUGS (1)
  1. HUMIRA [Suspect]
     Active Substance: ADALIMUMAB
     Indication: RHEUMATOID ARTHRITIS
     Route: 058
     Dates: start: 20181001

REACTIONS (7)
  - Brain hypoxia [Unknown]
  - Sleep apnoea syndrome [Recovering/Resolving]
  - Pain [Unknown]
  - Nervous system disorder [Unknown]
  - Dizziness [Unknown]
  - Pyrexia [Unknown]
  - Lung disorder [Unknown]

NARRATIVE: CASE EVENT DATE: 20200217
